FAERS Safety Report 8231535-1 (Version None)
Quarter: 2012Q1

REPORT INFORMATION
  Report Type: 
  Country: None (occurrence: None)
  Receive Date: 20120323
  Receipt Date: 20120316
  Transmission Date: 20120608
  Serious: Yes (Other)
  Sender: FDA-Public Use
  Company Number: PHHY2010CA37641

PATIENT
  Sex: Female

DRUGS (1)
  1. SANDOSTATIN LAR [Suspect]
     Indication: ACROMEGALY
     Dosage: 30 MG, QMO
     Route: 030
     Dates: start: 20060802

REACTIONS (7)
  - VOMITING [None]
  - PYREXIA [None]
  - BLISTER [None]
  - INFLUENZA [None]
  - PHARYNGITIS [None]
  - BLOOD PRESSURE INCREASED [None]
  - ABDOMINAL PAIN [None]
